FAERS Safety Report 5270429-0 (Version None)
Quarter: 2007Q1

REPORT INFORMATION
  Report Type: 
  Country: None (occurrence: None)
  Receive Date: 20070314
  Receipt Date: 20070226
  Transmission Date: 20070707
  Serious: Yes (Hospitalization)
  Sender: FDA-Public Use
  Company Number: 238097

PATIENT
  Age: 58 Year
  Sex: Male

DRUGS (4)
  1. AVASTIN [Suspect]
     Indication: COLORECTAL CANCER
     Dosage: 730 MG, Q3W, INTRAVENOUS
     Route: 042
     Dates: start: 20051205
  2. CAPECITABINE(CAPECITABINE) [Suspect]
     Indication: COLORECTAL CANCER
     Dosage: 2750 MG, BID, ORAL
     Route: 048
     Dates: start: 20051205
  3. OXALIPLATIN [Suspect]
     Indication: COLORECTAL CANCER
     Dosage: 390 MG, Q3W, INTRAVENOUS
     Route: 042
     Dates: start: 20051205
  4. PYRIDOXINE HCL [Concomitant]

REACTIONS (1)
  - EPILEPSY [None]
